FAERS Safety Report 7991938-7 (Version None)
Quarter: 2011Q4

REPORT INFORMATION
  Report Type: 
  Country: None (occurrence: None)
  Receive Date: 20111219
  Receipt Date: 20110509
  Transmission Date: 20120403
  Serious: Yes (Other)
  Sender: FDA-Public Use
  Company Number: US-ASTRAZENECA-2011SE24682

PATIENT
  Sex: Female
  Weight: 90.3 kg

DRUGS (6)
  1. CHORCON [Concomitant]
  2. ASPIRIN [Concomitant]
  3. ATENOLOL [Concomitant]
  4. DIOVAN [Concomitant]
  5. ZANTAC [Concomitant]
  6. CRESTOR [Suspect]
     Indication: HYPERCHOLESTEROLAEMIA
     Route: 048
     Dates: start: 20110201, end: 20110401

REACTIONS (3)
  - BLOOD CREATINE PHOSPHOKINASE INCREASED [None]
  - OEDEMA PERIPHERAL [None]
  - MYALGIA [None]
